FAERS Safety Report 12748791 (Version 2)
Quarter: 2016Q3

REPORT INFORMATION
  Report Type: Report from Study
  Country: ES (occurrence: ES)
  Receive Date: 20160915
  Receipt Date: 20160928
  Transmission Date: 20161109
  Serious: Yes (Hospitalization, Other)
  Sender: FDA-Public Use
  Company Number: ES-SHIRE-ES201610950

PATIENT

DRUGS (3)
  1. TEDUGLUTIDE [Suspect]
     Active Substance: TEDUGLUTIDE
     Indication: PRODUCT USED FOR UNKNOWN INDICATION
     Dosage: 0.35 ML, 1X/DAY:QD
     Route: 058
  2. TEDUGLUTIDE [Suspect]
     Active Substance: TEDUGLUTIDE
     Dosage: 1 DF, EVERY 72 HRS
     Route: 058
  3. TEDUGLUTIDE [Suspect]
     Active Substance: TEDUGLUTIDE
     Dosage: 0.35 ML, 1X/DAY:QD
     Route: 058
     Dates: start: 20160829

REACTIONS (6)
  - Pneumonia [Unknown]
  - Fatigue [Unknown]
  - Immunodeficiency [Unknown]
  - Dyspepsia [Unknown]
  - Gastrointestinal stoma complication [Unknown]
  - Puncture site erythema [Unknown]

NARRATIVE: CASE EVENT DATE: 201608
